FAERS Safety Report 8999048 (Version 1)
Quarter: 2013Q1

REPORT INFORMATION
  Report Type: Report from Study
  Country: UA (occurrence: UA)
  Receive Date: 20130103
  Receipt Date: 20130103
  Transmission Date: 20140127
  Serious: Yes (Death, Hospitalization)
  Sender: FDA-Public Use
  Company Number: UA-BRISTOL-MYERS SQUIBB COMPANY-17135013

PATIENT
  Age: 58 Year
  Sex: Female
  Weight: 84.2 kg

DRUGS (4)
  1. PACLITAXEL [Suspect]
     Indication: BREAST CANCER
     Route: 042
     Dates: start: 20110525, end: 20121010
  2. TRASTUZUMAB [Suspect]
     Indication: BREAST CANCER
     Route: 042
     Dates: start: 20110525, end: 20121010
  3. FLUANXOL [Concomitant]
     Indication: DEPRESSION
     Route: 048
     Dates: start: 20110215
  4. DEXAMETHASONE [Concomitant]
     Indication: PREMEDICATION
     Route: 030
     Dates: start: 20110524

REACTIONS (2)
  - Multi-organ failure [Fatal]
  - Hepatitis toxic [Unknown]
